FAERS Safety Report 17685887 (Version 1)
Quarter: 2020Q2

REPORT INFORMATION
  Report Type: Report from Study
  Country: CA (occurrence: CA)
  Receive Date: 20200420
  Receipt Date: 20200420
  Transmission Date: 20200714
  Serious: Yes (Other)
  Sender: FDA-Public Use
  Company Number: CA-JNJFOC-20191238965

PATIENT
  Age: 31 Year
  Sex: Female
  Weight: 66.7 kg

DRUGS (2)
  1. STELARA [Suspect]
     Active Substance: USTEKINUMAB
     Indication: CROHN^S DISEASE
     Route: 058
     Dates: start: 20190903
  2. STELARA [Suspect]
     Active Substance: USTEKINUMAB
     Route: 058

REACTIONS (3)
  - Seizure [Recovered/Resolved]
  - Crohn^s disease [Unknown]
  - Energy increased [Unknown]

NARRATIVE: CASE EVENT DATE: 20200228
